FAERS Safety Report 7763018-7 (Version None)
Quarter: 2011Q3

REPORT INFORMATION
  Report Type: 
  Country: None (occurrence: None)
  Receive Date: 20110825
  Receipt Date: 20110623
  Transmission Date: 20111222
  Serious: No
  Sender: FDA-Public Use
  Company Number: 330971

PATIENT
  Age: 68 Year
  Sex: Female

DRUGS (1)
  1. VICTOZA [Suspect]
     Indication: GLUCOSE TOLERANCE IMPAIRED
     Dosage: LESS THAN 0.6MG, QD, SUBCUTANEOUS
     Route: 058

REACTIONS (2)
  - IRRITABILITY [None]
  - MOOD SWINGS [None]
